FAERS Safety Report 5024099-7 (Version None)
Quarter: 2006Q2

REPORT INFORMATION
  Report Type: 
  Country: None (occurrence: None)
  Receive Date: 20060607
  Receipt Date: 20060524
  Transmission Date: 20061013
  Serious: Yes (Other)
  Sender: FDA-Public Use
  Company Number: 2006067684

PATIENT
  Sex: Female
  Weight: 63.5036 kg

DRUGS (8)
  1. XALATAN [Suspect]
     Indication: GLAUCOMA
     Dosage: 2 DROP (1 D), OPHTHALMIC
     Route: 047
  2. ANTIGLAUCOMA PREPARATIONS AND MIOTICS (ANTIGLAUCOMA PREPARATIONS AND M [Suspect]
     Indication: GLAUCOMA
     Dosage: OPHTHALMIC
     Route: 047
  3. LUMIGAN [Concomitant]
  4. TRUSOPT [Concomitant]
  5. BETOPTIC [Concomitant]
  6. ALPHAGAN [Concomitant]
  7. NEXIUM [Concomitant]
  8. ZETIA [Concomitant]

REACTIONS (6)
  - DRUG HYPERSENSITIVITY [None]
  - EYE IRRITATION [None]
  - EYE PAIN [None]
  - OCULAR HYPERAEMIA [None]
  - THERAPEUTIC PRODUCT CONTAMINATION [None]
  - VISUAL ACUITY REDUCED [None]
